FAERS Safety Report 25820196 (Version 2)
Quarter: 2025Q4

REPORT INFORMATION
  Report Type: Spontaneous
  Country: CN (occurrence: CN)
  Receive Date: 20250919
  Receipt Date: 20251001
  Transmission Date: 20260118
  Serious: Yes (Hospitalization, Other)
  Sender: SANOFI AVENTIS
  Company Number: CN-MLMSERVICE-20250905-PI634113-00309-1

PATIENT
  Age: 58 Year
  Sex: Female

DRUGS (4)
  1. TELMISARTAN [Interacting]
     Active Substance: TELMISARTAN
     Indication: Hypertension
     Dosage: 40 MG, QD
     Dates: end: 2024
  2. INSULIN GLARGINE [Suspect]
     Active Substance: INSULIN GLARGINE
     Indication: Diabetes mellitus
     Dosage: 16 IU, QD
  3. INSULIN ASPART [Suspect]
     Active Substance: INSULIN ASPART
     Indication: Diabetes mellitus
     Dosage: 4 IU, TID
  4. ACIPIMOX [Interacting]
     Active Substance: ACIPIMOX
     Indication: Lipid management
     Dosage: 1 DF, BID
     Route: 048
     Dates: end: 2024

REACTIONS (6)
  - Drug-induced liver injury [Recovering/Resolving]
  - Decreased appetite [Recovering/Resolving]
  - Hepatic cyst [Recovering/Resolving]
  - Chromaturia [Recovering/Resolving]
  - Sleep disorder [Recovering/Resolving]
  - Drug interaction [Recovering/Resolving]

NARRATIVE: CASE EVENT DATE: 20230101
